FAERS Safety Report 7131044-7 (Version None)
Quarter: 2010Q4

REPORT INFORMATION
  Report Type: 
  Country: None (occurrence: None)
  Receive Date: 20101201
  Receipt Date: 20101126
  Transmission Date: 20110411
  Serious: Yes (Hospitalization)
  Sender: FDA-Public Use
  Company Number: D0069567A

PATIENT
  Age: 90 Year
  Sex: Male

DRUGS (1)
  1. ARIXTRA [Suspect]
     Route: 058
     Dates: start: 20100101

REACTIONS (2)
  - PERICARDIAL EFFUSION [None]
  - PLEURAL EFFUSION [None]
